FAERS Safety Report 5467913-3 (Version None)
Quarter: 2007Q3

REPORT INFORMATION
  Report Type: 
  Country: None (occurrence: None)
  Receive Date: 20070926
  Receipt Date: 20070918
  Transmission Date: 20080115
  Serious: Yes (Hospitalization, Other)
  Sender: FDA-Public Use
  Company Number: HQ6040517SEP2001

PATIENT
  Age: 44 Year
  Sex: Male

DRUGS (6)
  1. EFFEXOR XR [Suspect]
     Indication: MAJOR DEPRESSION
     Route: 048
  2. SENOKOT [Concomitant]
     Dosage: AS NEEDED
     Route: 048
  3. DIAZEPAM [Concomitant]
     Route: 048
  4. LACTULOSE [Concomitant]
     Dosage: AS NEEDED
     Route: 048
  5. MS CONTIN [Concomitant]
     Indication: PAIN
     Route: 048
  6. MORPHINE [Concomitant]
     Indication: PAIN
     Dosage: 50MG AS NEEDED
     Route: 048

REACTIONS (1)
  - PANCYTOPENIA [None]
